FAERS Safety Report 24989113 (Version 1)
Quarter: 2025Q1

REPORT INFORMATION
  Report Type: Spontaneous
  Country: US (occurrence: US)
  Receive Date: 20250220
  Receipt Date: 20250220
  Transmission Date: 20250408
  Serious: Yes (Hospitalization, Other)
  Sender: HIKMA
  Company Number: US-MLMSERVICE-20250130-PI384474-00329-1

PATIENT
  Age: 4 Decade
  Sex: Female

DRUGS (2)
  1. VANCOMYCIN [Suspect]
     Active Substance: VANCOMYCIN
     Indication: Implant site cellulitis
     Route: 042
  2. CEFEPIME [Concomitant]
     Active Substance: CEFEPIME HYDROCHLORIDE
     Indication: Implant site cellulitis
     Route: 042

REACTIONS (4)
  - Anaemia [Unknown]
  - Tachycardia [Unknown]
  - Acute generalised exanthematous pustulosis [Recovering/Resolving]
  - Hypotension [Unknown]
